FAERS Safety Report 19734112 (Version 1)
Quarter: 2021Q3

REPORT INFORMATION
  Report Type: Spontaneous
  Country: US (occurrence: US)
  Receive Date: 20210824
  Receipt Date: 20210824
  Transmission Date: 20211014
  Serious: No
  Sender: FDA-Public Use
  Company Number: US-ELI_LILLY_AND_COMPANY-US202108009613

PATIENT
  Age: 85 Year
  Sex: Female

DRUGS (1)
  1. HUMALOG [Suspect]
     Active Substance: INSULIN LISPRO
     Indication: PRODUCT USED FOR UNKNOWN INDICATION
     Dosage: 10 U, PRN (SLIDING SCALE)
     Route: 058

REACTIONS (6)
  - Product dose omission issue [Unknown]
  - Balance disorder [Unknown]
  - Visual impairment [Unknown]
  - Feeling abnormal [Unknown]
  - Blood glucose increased [Unknown]
  - Head injury [Unknown]

NARRATIVE: CASE EVENT DATE: 20210819
